FAERS Safety Report 5446326-4 (Version None)
Quarter: 2007Q3

REPORT INFORMATION
  Report Type: 
  Country: None (occurrence: None)
  Receive Date: 20070907
  Receipt Date: 20070827
  Transmission Date: 20080115
  Serious: Yes (Hospitalization)
  Sender: FDA-Public Use
  Company Number: DE-ROCHE-506079

PATIENT
  Age: 68 Year
  Sex: Male

DRUGS (2)
  1. XELODA [Suspect]
     Dosage: IN THE MORNING AND IN THE EVENING.
     Route: 048
     Dates: start: 20070529, end: 20070610
  2. OXALIPLATIN [Concomitant]
     Dosage: ON DAY ONE OF FIRST CYCLE.
     Route: 042
     Dates: start: 20070529, end: 20070529

REACTIONS (5)
  - HYPOKALAEMIA [None]
  - MUCOSAL INFLAMMATION [None]
  - PANCREATITIS [None]
  - PROTHROMBIN TIME PROLONGED [None]
  - WOUND [None]
